FAERS Safety Report 5592905-3 (Version None)
Quarter: 2008Q1

REPORT INFORMATION
  Report Type: 
  Country: None (occurrence: None)
  Receive Date: 20080114
  Receipt Date: 20080114
  Transmission Date: 20080703
  Serious: No
  Sender: FDA-Public Use
  Company Number: None

PATIENT
  Age: 42 Year
  Sex: Female
  Weight: 54.4316 kg

DRUGS (2)
  1. CHANTIX [Suspect]
     Indication: SMOKING CESSATION THERAPY
     Dosage: 0.5   1X A DAY
     Dates: start: 20080103, end: 20080111
  2. CHANTIX [Suspect]
     Dosage: 1.0   2X''S A DAY

REACTIONS (5)
  - CONSTIPATION [None]
  - DEPRESSION [None]
  - FATIGUE [None]
  - LETHARGY [None]
  - STOMATITIS [None]
